FAERS Safety Report 7957857-7 (Version None)
Quarter: 2011Q4

REPORT INFORMATION
  Report Type: 
  Country: None (occurrence: None)
  Receive Date: 20111205
  Receipt Date: 20111125
  Transmission Date: 20120403
  Serious: Yes (Hospitalization)
  Sender: FDA-Public Use
  Company Number: DE-MILLENNIUM PHARMACEUTICALS, INC.-2011-05985

PATIENT

DRUGS (12)
  1. VELCADE [Suspect]
     Indication: MULTIPLE MYELOMA
     Dosage: 1.3 MG/M2, CYCLIC
     Route: 042
  2. ESOMEPRAZOLE [Concomitant]
     Dosage: UNK
     Route: 065
  3. FLUCONAZOLE [Concomitant]
  4. PREGABALIN [Concomitant]
     Route: 065
  5. ACETYLSALICYLIC ACID SRT [Concomitant]
     Route: 065
  6. DEXAMETHASONE [Suspect]
     Indication: MULTIPLE MYELOMA
     Dosage: 20 MG, UNK
     Route: 048
  7. FENTANYL [Concomitant]
     Dosage: 32 UG, UNK
  8. TEMISARTAN [Concomitant]
     Route: 065
  9. VALACICLOVIR [Concomitant]
     Route: 065
  10. COTRIM [Concomitant]
     Route: 065
  11. HYDROCHLOROTHIAZIDE [Concomitant]
     Dosage: 12.5 UNK, UNK
     Route: 065
  12. CYCLOPHOSPHAMIDE [Suspect]
     Indication: MULTIPLE MYELOMA
     Dosage: 500 MG/M2, UNK
     Route: 042

REACTIONS (2)
  - BLOOD CREATININE INCREASED [None]
  - NAUSEA [None]
